FAERS Safety Report 21834706 (Version 1)
Quarter: 2023Q1

REPORT INFORMATION
  Report Type: Spontaneous
  Country: US (occurrence: US)
  Receive Date: 20230108
  Receipt Date: 20230108
  Transmission Date: 20230417
  Serious: No
  Sender: FDA-Public Use
  Company Number: US-BAUSCHBL-2023BNL000075

PATIENT
  Sex: Female

DRUGS (2)
  1. LOTEMAX [Suspect]
     Active Substance: LOTEPREDNOL ETABONATE
     Indication: Neuropathy peripheral
     Route: 047
     Dates: start: 2022
  2. LOTEMAX [Suspect]
     Active Substance: LOTEPREDNOL ETABONATE
     Indication: Product use in unapproved indication
     Route: 047

REACTIONS (4)
  - Eye pain [Unknown]
  - Disease recurrence [Unknown]
  - Intraocular pressure increased [Unknown]
  - Off label use [Unknown]
